FAERS Safety Report 7580296-8 (Version None)
Quarter: 2011Q2

REPORT INFORMATION
  Report Type: 
  Country: None (occurrence: None)
  Receive Date: 20110629
  Receipt Date: 20110621
  Transmission Date: 20111010
  Serious: Yes (Hospitalization)
  Sender: FDA-Public Use
  Company Number: US-AMGEN-USASP2011032111

PATIENT
  Age: 18 Year
  Sex: Female
  Weight: 52 kg

DRUGS (8)
  1. NEUPOGEN [Suspect]
     Indication: CHEMOTHERAPY
  2. DOCETAXEL [Concomitant]
  3. MIFAMURTIDE [Suspect]
     Dosage: 2 MG/M2, UNK
     Dates: start: 20100604, end: 20101122
  4. GEMCITABINE [Concomitant]
  5. BEVACIZUMAB [Concomitant]
  6. ESCITALOPRAM OXALATE [Concomitant]
  7. DEXAMETHASONE [Concomitant]
  8. SULFAMETHOXAZOLE [Concomitant]

REACTIONS (3)
  - PERICARDIAL EFFUSION [None]
  - PLEURAL EFFUSION [None]
  - RENAL FAILURE [None]
